FAERS Safety Report 10971775 (Version 2)
Quarter: 2015Q2

REPORT INFORMATION
  Report Type: Spontaneous
  Country: US (occurrence: US)
  Receive Date: 20150331
  Receipt Date: 20150515
  Transmission Date: 20150821
  Serious: Yes (Death)
  Sender: FDA-Public Use
  Company Number: US-BAYER-2015-071954

PATIENT
  Age: 32 Year
  Sex: Male

DRUGS (11)
  1. OMEPRAZOLE. [Concomitant]
     Active Substance: OMEPRAZOLE
  2. PYRIDOXINE [Concomitant]
     Active Substance: PYRIDOXINE
  3. TRAZODONE [Concomitant]
     Active Substance: TRAZODONE HYDROCHLORIDE
  4. EFFEXOR [Concomitant]
     Active Substance: VENLAFAXINE HYDROCHLORIDE
  5. TENOFOVIR [Concomitant]
     Active Substance: TENOFOVIR
  6. ISONIAZID. [Concomitant]
     Active Substance: ISONIAZID
  7. URSODIOL. [Concomitant]
     Active Substance: URSODIOL
  8. ABILIFY [Concomitant]
     Active Substance: ARIPIPRAZOLE
  9. OXYCODONE [Concomitant]
     Active Substance: OXYCODONE
  10. ANTIHEMOPHILIC FACTOR VIII (RECOMBINANT), SUCROSE FORMULATED [Suspect]
     Active Substance: ANTIHEMOPHILIC FACTOR, HUMAN RECOMBINANT
     Indication: HAEMOPHILIA
     Dosage: Q3WK AT A DOSE OF 3600-4400 UNITS
     Route: 040
     Dates: start: 20140516, end: 20150323
  11. SUCRALFATE. [Concomitant]
     Active Substance: SUCRALFATE

REACTIONS (2)
  - Myocardial infarction [Fatal]
  - Arrhythmia [Fatal]

NARRATIVE: CASE EVENT DATE: 20150323
